FAERS Safety Report 9834699 (Version 2)
Quarter: 2014Q1

REPORT INFORMATION
  Report Type: Spontaneous
  Country: US (occurrence: US)
  Receive Date: 20140122
  Receipt Date: 20140214
  Transmission Date: 20141002
  Serious: Yes (Death, Other)
  Sender: FDA-Public Use
  Company Number: US-ALLERGAN-1401004US

PATIENT
  Age: 61 Year
  Sex: Male

DRUGS (5)
  1. BOTOX [Suspect]
     Indication: MIGRAINE
     Dosage: 155 UNITS, SINGLE
     Route: 030
     Dates: start: 20140103, end: 20140103
  2. ULTRAM [Concomitant]
     Indication: PAIN
     Dosage: 50 MG, PRN
  3. VITAMIN D [Concomitant]
     Indication: VITAMIN D DEFICIENCY
  4. PREDNISONE [Concomitant]
     Indication: PRODUCT USED FOR UNKNOWN INDICATION
     Dosage: 10 MG, BID
  5. TYLENOL [Concomitant]
     Indication: PRODUCT USED FOR UNKNOWN INDICATION
     Dosage: 500 MG, PRN

REACTIONS (7)
  - Cardio-respiratory arrest [Fatal]
  - Ventricular fibrillation [Fatal]
  - Pneumonia [Unknown]
  - Encephalopathy [Unknown]
  - Thrombocytopenia [Unknown]
  - Sepsis [Unknown]
  - Pyrexia [Unknown]
